FAERS Safety Report 9330606 (Version 2)
Quarter: 2013Q4

REPORT INFORMATION
  Report Type: Spontaneous
  Country: US (occurrence: US)
  Receive Date: 20130605
  Receipt Date: 20131119
  Transmission Date: 20140711
  Serious: Yes (Hospitalization)
  Sender: FDA-Public Use
  Company Number: US-B.I. PHARMACEUTICALS,INC./RIDGEFIELD-2013-BI-15582BP

PATIENT
  Age: 78 Year
  Sex: Female
  Weight: 81.65 kg

DRUGS (26)
  1. PRADAXA [Suspect]
     Indication: ANTICOAGULANT THERAPY
     Dosage: 300 MG
     Route: 048
     Dates: start: 20110510, end: 20121222
  2. PRADAXA [Suspect]
     Indication: ATRIAL FIBRILLATION
  3. VALTREX [Concomitant]
  4. PROMETHAZINE [Concomitant]
  5. EPIPEN [Concomitant]
  6. MAGNESIUM [Concomitant]
     Dosage: 200 MG
     Route: 048
  7. POLYETHYLENE GLYCOL [Concomitant]
  8. XOPENEX [Concomitant]
  9. VITAMIN B12 [Concomitant]
  10. METOPROLOL SUCCINATE [Concomitant]
     Dosage: 50 MG
     Route: 048
     Dates: start: 2010
  11. SYNTHROID [Concomitant]
     Dates: start: 2008
  12. ATORVASTATIN [Concomitant]
     Dosage: 40 MG
     Route: 048
  13. NASONEX [Concomitant]
  14. PERCOCET [Concomitant]
     Dates: start: 2005
  15. SPIRIVA [Concomitant]
     Dates: start: 2010
  16. VITAMIN D [Concomitant]
  17. NORVASC [Concomitant]
     Dosage: 2.5 MG
     Route: 048
  18. AMIODARONE [Concomitant]
     Dosage: 200 MG
     Route: 048
     Dates: start: 2010
  19. LASIX [Concomitant]
     Dosage: 20 MG
     Route: 048
  20. PYRIDIUM [Concomitant]
  21. PROAIR [Concomitant]
     Route: 055
     Dates: start: 2010
  22. NITROFURANTOIN [Concomitant]
  23. SINGULAIR [Concomitant]
     Dates: start: 2003
  24. NEXIUM [Concomitant]
     Dosage: 80 MG
     Dates: start: 2008
  25. SYMBICORT [Concomitant]
     Dates: start: 2003
  26. FLUTICASONE PROPIONATE [Concomitant]

REACTIONS (4)
  - Gastrointestinal haemorrhage [Unknown]
  - Anaemia [Unknown]
  - Coagulopathy [Unknown]
  - Renal failure acute [Unknown]
